FAERS Safety Report 8609991-6 (Version None)
Quarter: 2012Q3

REPORT INFORMATION
  Report Type: 
  Country: None (occurrence: None)
  Receive Date: 20120822
  Receipt Date: 20120809
  Transmission Date: 20120928
  Serious: Yes (Hospitalization, Other)
  Sender: FDA-Public Use
  Company Number: JP-AMGEN-JPNSP2012052046

PATIENT
  Age: 65 Year
  Sex: Male
  Weight: 63 kg

DRUGS (11)
  1. DILTIAZEM HCL [Concomitant]
     Indication: HYPERTENSION
     Route: 048
  2. OXYCODONE HYDROCHLORIDE [Concomitant]
     Indication: PAIN MANAGEMENT
     Dosage: AS NEEDED
     Route: 048
     Dates: start: 20120712
  3. EXJADE [Concomitant]
     Indication: IRON OVERLOAD
     Route: 048
  4. THALED [Concomitant]
     Indication: MULTIPLE MYELOMA
     Route: 048
     Dates: start: 20120410
  5. OXYCONTIN [Concomitant]
     Dosage: 1 DF, UNK
     Route: 065
  6. SULFAMETHOXAZOLE AND TRIMETHOPRIM [Concomitant]
     Indication: PROPHYLAXIS
     Route: 048
  7. RABEPRAZOLE SODIUM [Concomitant]
     Indication: GASTROOESOPHAGEAL REFLUX DISEASE
     Route: 048
  8. TRAMADOL HYDROCHLORIDE [Concomitant]
     Indication: PAIN MANAGEMENT
     Route: 048
     Dates: start: 20120628, end: 20120719
  9. RENAGEL [Concomitant]
     Indication: HYPERPHOSPHATAEMIA
     Route: 048
  10. RANMARK [Suspect]
     Indication: METASTASES TO BONE
     Dosage: 120 MG, UNK
     Route: 058
     Dates: start: 20120712
  11. PROCHLORPERAZINE [Concomitant]
     Indication: NAUSEA
     Route: 048

REACTIONS (2)
  - HYPOCALCAEMIA [None]
  - CELLULITIS [None]
